FAERS Safety Report 4694901-7 (Version None)
Quarter: 2005Q2

REPORT INFORMATION
  Report Type: 
  Country: None (occurrence: None)
  Receive Date: 20050617
  Receipt Date: 20050606
  Transmission Date: 20051028
  Serious: Yes (Other)
  Sender: FDA-Public Use
  Company Number: 2005048401

PATIENT
  Sex: Female
  Weight: 76.6579 kg

DRUGS (7)
  1. CELEBREX [Suspect]
     Indication: ARTHRITIS
  2. COUMADIN [Concomitant]
  3. ALL OTHER NON-THERAPEUTIC PRODUCTS (ALL OTHER NON-THERAPEUTIC PRODUCTS [Concomitant]
  4. NEURONTIN [Concomitant]
  5. HYZAAR (HYDROCHLOROTHIAZIDE, LOSARTAN POTASSIM) [Concomitant]
  6. IMDUR [Concomitant]
  7. TOPROL (METOPROLOL) [Concomitant]

REACTIONS (8)
  - ATRIAL FIBRILLATION [None]
  - CONDITION AGGRAVATED [None]
  - DIABETES MELLITUS [None]
  - ENDOMETRIOSIS [None]
  - INCISION SITE COMPLICATION [None]
  - INGUINAL HERNIA [None]
  - MACULAR DEGENERATION [None]
  - OEDEMA PERIPHERAL [None]
